FAERS Safety Report 9721634 (Version 1)
Quarter: 2013Q4

REPORT INFORMATION
  Report Type: Spontaneous
  Country: US (occurrence: US)
  Receive Date: 20131201
  Receipt Date: 20131201
  Transmission Date: 20140711
  Serious: No
  Sender: FDA-Public Use
  Company Number: US-ABBVIE-13P-163-1148812-00

PATIENT
  Age: 66 Year
  Sex: Male
  Weight: 108.96 kg

DRUGS (8)
  1. ANDROGEL [Suspect]
     Indication: BLOOD TESTOSTERONE DECREASED
     Route: 061
     Dates: start: 201208
  2. ANDROGEL [Suspect]
     Route: 061
     Dates: start: 201206, end: 201208
  3. WELLBUTRIN [Concomitant]
     Indication: DEPRESSION
  4. VIAGRA [Concomitant]
     Indication: ERECTILE DYSFUNCTION
  5. BABY ASPIRIN [Concomitant]
     Indication: BLOOD DISORDER
  6. UNKNOWN BLOOD PRESSURE MEDICATION [Concomitant]
     Indication: HYPERTENSION
  7. RITALIN [Concomitant]
     Indication: DEPRESSION
  8. RITALIN [Concomitant]
     Indication: DRUG EFFECT INCREASED

REACTIONS (6)
  - Blood testosterone increased [Recovered/Resolved]
  - Asthenia [Not Recovered/Not Resolved]
  - Erectile dysfunction [Not Recovered/Not Resolved]
  - Erectile dysfunction [Not Recovered/Not Resolved]
  - Drug administered at inappropriate site [Not Recovered/Not Resolved]
  - Medication error [Not Recovered/Not Resolved]
